FAERS Safety Report 23333805 (Version 1)
Quarter: 2023Q4

REPORT INFORMATION
  Report Type: Spontaneous
  Country: US (occurrence: US)
  Receive Date: 20231223
  Receipt Date: 20231223
  Transmission Date: 20240109
  Serious: Yes (Other)
  Sender: FDA-Public Use
  Company Number: US-GSKCCFUS-Case-01887547_AE-105352

PATIENT

DRUGS (1)
  1. TRELEGY ELLIPTA [Suspect]
     Active Substance: FLUTICASONE FUROATE\UMECLIDINIUM BROMIDE\VILANTEROL TRIFENATATE
     Indication: Product used for unknown indication
     Dosage: 1 PUFF(S), QD,100/62.5/25
     Route: 055
     Dates: start: 202002

REACTIONS (6)
  - Small cell carcinoma [Not Recovered/Not Resolved]
  - Rash pruritic [Not Recovered/Not Resolved]
  - Stomatitis [Not Recovered/Not Resolved]
  - Urinary tract discomfort [Not Recovered/Not Resolved]
  - Sinus disorder [Not Recovered/Not Resolved]
  - Intercepted medication error [Unknown]

NARRATIVE: CASE EVENT DATE: 20230801
